FAERS Safety Report 10007721 (Version 1)
Quarter: 2014Q1

REPORT INFORMATION
  Report Type: Spontaneous
  Country: US (occurrence: US)
  Receive Date: 20140313
  Receipt Date: 20140313
  Transmission Date: 20141002
  Serious: No
  Sender: FDA-Public Use
  Company Number: US-GILEAD-2012-0064980

PATIENT
  Sex: Female

DRUGS (1)
  1. LETAIRIS [Suspect]
     Indication: CARDIAC SEPTAL DEFECT
     Dosage: 5 MG, QD
     Route: 048
     Dates: start: 20121018

REACTIONS (1)
  - Drug hypersensitivity [Unknown]
